FAERS Safety Report 11592384 (Version 1)
Quarter: 2015Q4

REPORT INFORMATION
  Report Type: Spontaneous
  Country: US (occurrence: US)
  Receive Date: 20151005
  Receipt Date: 20151005
  Transmission Date: 20160304
  Serious: Yes (Other)
  Sender: FDA-Public Use
  Company Number: US-ROCHE-1640075

PATIENT
  Sex: Female

DRUGS (1)
  1. XELODA [Suspect]
     Active Substance: CAPECITABINE
     Indication: BREAST CANCER METASTATIC
     Dosage: 1800 MG: 2 150 MG AND 3 500 MG TABS TWICE A DAY
     Route: 065
     Dates: start: 2013

REACTIONS (10)
  - Diarrhoea [Recovering/Resolving]
  - Nausea [Recovering/Resolving]
  - Vomiting [Recovered/Resolved]
  - Constipation [Unknown]
  - Dehydration [Not Recovered/Not Resolved]
  - Blister [Recovering/Resolving]
  - Impaired healing [Recovered/Resolved]
  - Skin exfoliation [Not Recovered/Not Resolved]
  - Abasia [Not Recovered/Not Resolved]
  - Dry skin [Not Recovered/Not Resolved]

NARRATIVE: CASE EVENT DATE: 2013
